FAERS Safety Report 6306552-9 (Version None)
Quarter: 2009Q3

REPORT INFORMATION
  Report Type: 
  Country: None (occurrence: None)
  Receive Date: 20090812
  Receipt Date: 20090714
  Transmission Date: 20100115
  Serious: Yes (Other)
  Sender: FDA-Public Use
  Company Number: JP-MERCK-0907USA02837

PATIENT
  Age: 81 Year
  Sex: Female

DRUGS (5)
  1. PEPCID [Suspect]
     Indication: GASTRIC ULCER
     Route: 048
     Dates: start: 20040101
  2. PAMIDRONATE DISODIUM [Suspect]
     Route: 065
     Dates: start: 20040901, end: 20060601
  3. ZOLEDRONIC ACID [Suspect]
     Route: 065
     Dates: start: 20060601, end: 20070101
  4. ZOLEDRONIC ACID [Suspect]
     Route: 065
     Dates: start: 20070301, end: 20090701
  5. TAMOXIFEN CITRATE [Concomitant]
     Route: 065
     Dates: start: 20010701

REACTIONS (1)
  - OSTEONECROSIS [None]
